FAERS Safety Report 25492098 (Version 3)
Quarter: 2025Q3

REPORT INFORMATION
  Report Type: Spontaneous
  Country: EU (occurrence: EU)
  Receive Date: 20250630
  Receipt Date: 20250717
  Transmission Date: 20251020
  Serious: Yes (Death, Other)
  Sender: CELLTRION
  Company Number: EU-PFIZER INC-PV202500012585

PATIENT

DRUGS (30)
  1. AVASTIN [Suspect]
     Active Substance: BEVACIZUMAB
     Indication: Ovarian epithelial cancer
     Route: 065
     Dates: start: 202402
  2. AVASTIN [Suspect]
     Active Substance: BEVACIZUMAB
     Indication: Ovarian cancer
     Dates: start: 202402
  3. AVASTIN [Suspect]
     Active Substance: BEVACIZUMAB
     Dosage: 10 MILLIGRAM/KILOGRAM, Q2WK
     Route: 065
     Dates: start: 202402
  4. BEVACIZUMAB [Suspect]
     Active Substance: BEVACIZUMAB
     Indication: Ovarian epithelial cancer
     Dates: start: 202402
  5. BEVACIZUMAB [Suspect]
     Active Substance: BEVACIZUMAB
     Indication: Ovarian cancer
     Dosage: 10 MILLIGRAM/KILOGRAM, Q2WK
     Route: 065
     Dates: start: 202402
  6. CARBOPLATIN [Suspect]
     Active Substance: CARBOPLATIN
     Indication: Ovarian epithelial cancer
     Route: 065
     Dates: start: 2012
  7. CARBOPLATIN [Suspect]
     Active Substance: CARBOPLATIN
     Route: 065
     Dates: start: 2013
  8. CARBOPLATIN [Suspect]
     Active Substance: CARBOPLATIN
     Dosage: WEEKLY, AUC 2
     Route: 065
     Dates: start: 2014
  9. CARBOPLATIN [Suspect]
     Active Substance: CARBOPLATIN
     Route: 065
     Dates: start: 2022, end: 202309
  10. PACLITAXEL [Suspect]
     Active Substance: PACLITAXEL
     Indication: Ovarian epithelial cancer
     Route: 065
     Dates: start: 2012
  11. PACLITAXEL [Suspect]
     Active Substance: PACLITAXEL
     Route: 065
     Dates: start: 2014
  12. TALAZOPARIB [Suspect]
     Active Substance: TALAZOPARIB
     Indication: Ovarian epithelial cancer
     Route: 065
     Dates: start: 202309
  13. DOXORUBICIN HYDROCHLORIDE [Suspect]
     Active Substance: DOXORUBICIN HYDROCHLORIDE
     Indication: Ovarian epithelial cancer
     Route: 065
     Dates: start: 2013
  14. DOXORUBICIN HYDROCHLORIDE [Suspect]
     Active Substance: DOXORUBICIN HYDROCHLORIDE
     Route: 065
     Dates: start: 202402
  15. OLAPARIB [Suspect]
     Active Substance: OLAPARIB
     Indication: Ovarian epithelial cancer
     Route: 065
     Dates: start: 201504, end: 202305
  16. LENOGRASTIM [Suspect]
     Active Substance: LENOGRASTIM
     Indication: Ovarian epithelial cancer
     Route: 065
     Dates: start: 2012
  17. GRANULOCYTE COLONY-STIMULATING FACTOR NOS [Suspect]
     Active Substance: GRANULOCYTE COLONY-STIMULATING FACTOR NOS
     Indication: Ovarian epithelial cancer
     Dates: start: 2012
  18. FILGRASTIM [Suspect]
     Active Substance: FILGRASTIM
     Indication: Ovarian epithelial cancer
     Route: 065
     Dates: start: 2012
  19. DOXORUBICIN [Concomitant]
     Active Substance: DOXORUBICIN
     Indication: Product used for unknown indication
     Dosage: 50 MILLIGRAM/SQ. METER, Q4WK
     Route: 065
  20. DOXORUBICIN [Concomitant]
     Active Substance: DOXORUBICIN
     Dosage: 30 MILLIGRAM/SQ. METER, Q4WK
     Route: 065
  21. PACLITAXEL [Concomitant]
     Active Substance: PACLITAXEL
     Indication: Ovarian epithelial cancer
     Dates: start: 2012
  22. PACLITAXEL [Concomitant]
     Active Substance: PACLITAXEL
     Dates: start: 2014
  23. CARBOPLATIN [Concomitant]
     Active Substance: CARBOPLATIN
     Indication: Ovarian epithelial cancer
     Dates: start: 2012
  24. CARBOPLATIN [Concomitant]
     Active Substance: CARBOPLATIN
     Dates: start: 202203, end: 202309
  25. CARBOPLATIN [Concomitant]
     Active Substance: CARBOPLATIN
     Dates: start: 2013
  26. CARBOPLATIN [Concomitant]
     Active Substance: CARBOPLATIN
     Dates: start: 2014
  27. CARBOPLATIN [Concomitant]
     Active Substance: CARBOPLATIN
     Dates: start: 2022, end: 202309
  28. OLAPARIB [Concomitant]
     Active Substance: OLAPARIB
     Indication: Ovarian epithelial cancer
     Dates: start: 201504, end: 202305
  29. DOXORUBICIN HYDROCHLORIDE [Concomitant]
     Active Substance: DOXORUBICIN HYDROCHLORIDE
     Indication: Ovarian epithelial cancer
     Dosage: 50 MG/M2 EVERY 4 WEEKS (50 MG/M2, CYCLIC (EVERY 4 WEEKS) )
     Dates: start: 2013
  30. DOXORUBICIN HYDROCHLORIDE [Concomitant]
     Active Substance: DOXORUBICIN HYDROCHLORIDE
     Dosage: 30 MG/M2 EVERY 4 WEEKS (30 MG/M2, CYCLIC (EVERY 4 WEEKS))
     Dates: start: 202402

REACTIONS (12)
  - Second primary malignancy [Fatal]
  - Acute myeloid leukaemia [Fatal]
  - Ovarian cancer [Fatal]
  - Neoplasm progression [Fatal]
  - Death [Fatal]
  - Disseminated intravascular coagulation [Unknown]
  - Ovarian cancer metastatic [Unknown]
  - Myeloid leukaemia [Unknown]
  - Myelodysplastic syndrome transformation [Unknown]
  - Transformation to acute myeloid leukaemia [Unknown]
  - Ovarian cancer recurrent [Unknown]
  - Off label use [Unknown]

NARRATIVE: CASE EVENT DATE: 20130101
